FAERS Safety Report 5187025-6 (Version None)
Quarter: 2006Q4

REPORT INFORMATION
  Report Type: 
  Country: None (occurrence: None)
  Receive Date: 20061213
  Receipt Date: 20061128
  Transmission Date: 20070319
  Serious: Yes (Death)
  Sender: FDA-Public Use
  Company Number: 082

PATIENT
  Sex: Female

DRUGS (1)
  1. FAZACLO ODT [Suspect]
     Dosage: 400 MG PO DAILY
     Route: 048
     Dates: start: 20061027, end: 20061120

REACTIONS (1)
  - DEATH [None]
